FAERS Safety Report 14629082 (Version 4)
Quarter: 2019Q3

REPORT INFORMATION
  Report Type: Spontaneous
  Country: US (occurrence: US)
  Receive Date: 20180313
  Receipt Date: 20190715
  Transmission Date: 20191004
  Serious: Yes (Hospitalization, Other)
  Sender: FDA-Public Use
  Company Number: US-ASTRAZENECA-2018SE30378

PATIENT
  Age: 715 Month
  Sex: Female
  Weight: 77.1 kg

DRUGS (59)
  1. PRILOSEC [Suspect]
     Active Substance: OMEPRAZOLE MAGNESIUM
     Indication: GASTROOESOPHAGEAL REFLUX DISEASE
     Dosage: 40.0MG UNKNOWN
     Route: 048
     Dates: start: 2014
  2. CLORAZ DIPOT [Concomitant]
  3. MERIDIA [Concomitant]
     Active Substance: SIBUTRAMINE HYDROCHLORIDE
  4. PREDNISONE. [Concomitant]
     Active Substance: PREDNISONE
  5. AMITIZA [Concomitant]
     Active Substance: LUBIPROSTONE
  6. DICYCLOMINE [Concomitant]
     Active Substance: DICYCLOMINE HYDROCHLORIDE
  7. IMITREX [Concomitant]
     Active Substance: SUMATRIPTAN SUCCINATE
  8. NEXIUM [Suspect]
     Active Substance: ESOMEPRAZOLE MAGNESIUM
     Indication: GASTROOESOPHAGEAL REFLUX DISEASE
     Route: 048
     Dates: start: 2006, end: 2017
  9. PRILOSEC [Suspect]
     Active Substance: OMEPRAZOLE MAGNESIUM
     Indication: GASTROOESOPHAGEAL REFLUX DISEASE
     Dosage: GENERIC40.0MG UNKNOWN
     Route: 065
     Dates: start: 2011, end: 2017
  10. NEURONTIN [Concomitant]
     Active Substance: GABAPENTIN
     Indication: NEUROPATHY PERIPHERAL
     Dates: start: 2011, end: 2017
  11. SIMVASTATIN. [Concomitant]
     Active Substance: SIMVASTATIN
     Indication: BLOOD CHOLESTEROL INCREASED
     Dates: start: 2011, end: 2017
  12. CIPROFLOXACIN. [Concomitant]
     Active Substance: CIPROFLOXACIN
     Indication: ANTIBIOTIC THERAPY
     Dates: start: 2010, end: 2015
  13. FLUTICASONE. [Concomitant]
     Active Substance: FLUTICASONE
     Indication: MULTIPLE ALLERGIES
     Dates: start: 2014
  14. HYDROCODONE [Concomitant]
     Active Substance: HYDROCODONE
  15. VICODIN [Concomitant]
     Active Substance: ACETAMINOPHEN\HYDROCODONE BITARTRATE
  16. RELISTOR [Concomitant]
     Active Substance: METHYLNALTREXONE BROMIDE
  17. NEXIUM [Suspect]
     Active Substance: ESOMEPRAZOLE MAGNESIUM
     Indication: GASTROOESOPHAGEAL REFLUX DISEASE
     Dosage: GENERIC
     Route: 065
     Dates: start: 2011, end: 2017
  18. HYDRO/APAP [Concomitant]
     Active Substance: ACETAMINOPHEN\HYDROCODONE
     Indication: PAIN
  19. CEPHALEXIN. [Concomitant]
     Active Substance: CEPHALEXIN
     Indication: ANTIBIOTIC LEVEL
     Dates: start: 2010, end: 2015
  20. PROMETH VC [Concomitant]
  21. DEXTROSE. [Concomitant]
     Active Substance: DEXTROSE
     Dates: start: 20170731
  22. MUPIROCIN. [Concomitant]
     Active Substance: MUPIROCIN
  23. PRILOSEC [Suspect]
     Active Substance: OMEPRAZOLE MAGNESIUM
     Indication: GASTROOESOPHAGEAL REFLUX DISEASE
     Dosage: 40.0MG UNKNOWN
     Route: 048
     Dates: start: 20170801
  24. METAXALONE. [Concomitant]
     Active Substance: METAXALONE
     Indication: MUSCLE RELAXANT THERAPY
     Dates: start: 2015, end: 2017
  25. LEXAPRO [Concomitant]
     Active Substance: ESCITALOPRAM OXALATE
     Indication: DEPRESSION
     Dates: start: 2012, end: 2017
  26. BUPROPION. [Concomitant]
     Active Substance: BUPROPION
     Indication: ANTIDEPRESSANT THERAPY
     Dates: start: 2006
  27. LISINOPRIL. [Concomitant]
     Active Substance: LISINOPRIL
  28. SPIRONOLACTONE. [Concomitant]
     Active Substance: SPIRONOLACTONE
     Dates: start: 20170803
  29. ALBUTEROL. [Concomitant]
     Active Substance: ALBUTEROL
  30. GLUCOSAMINE [Concomitant]
     Active Substance: GLUCOSAMINE
  31. PROMETHAZINE [Concomitant]
     Active Substance: PROMETHAZINE HYDROCHLORIDE
     Indication: VOMITING
     Dates: start: 2011, end: 2017
  32. PROMETHAZINE [Concomitant]
     Active Substance: PROMETHAZINE HYDROCHLORIDE
     Indication: NAUSEA
     Dates: start: 2011, end: 2017
  33. PENICILLIN [Concomitant]
     Active Substance: PENICILLIN
  34. CLINDAMYCIN. [Concomitant]
     Active Substance: CLINDAMYCIN
  35. LOVENOX [Concomitant]
     Active Substance: ENOXAPARIN SODIUM
  36. MORPHINE [Concomitant]
     Active Substance: MORPHINE
  37. CELEBREX [Concomitant]
     Active Substance: CELECOXIB
  38. CHERATUSSIN [Concomitant]
     Active Substance: AMMONIUM CHLORIDE\DEXTROMETHORPHAN\SODIUM CITRATE
  39. LEVOFLOXACIN. [Concomitant]
     Active Substance: LEVOFLOXACIN
  40. ASPIRIN. [Concomitant]
     Active Substance: ASPIRIN
  41. ATIVAN [Concomitant]
     Active Substance: LORAZEPAM
  42. AMBIEN [Concomitant]
     Active Substance: ZOLPIDEM TARTRATE
     Indication: INSOMNIA
     Dates: start: 2014, end: 2016
  43. NOVOLIN [Concomitant]
     Active Substance: INSULIN HUMAN
     Dates: start: 20170731
  44. VIBRA [Concomitant]
  45. NEXIUM [Suspect]
     Active Substance: ESOMEPRAZOLE MAGNESIUM
     Indication: GASTROOESOPHAGEAL REFLUX DISEASE
     Route: 048
     Dates: start: 2005, end: 2006
  46. FUROSEMIDE. [Concomitant]
     Active Substance: FUROSEMIDE
     Indication: FLUID RETENTION
     Dates: start: 2013, end: 2014
  47. GLYBURIDE. [Concomitant]
     Active Substance: GLYBURIDE
     Indication: DIABETES MELLITUS
     Dates: start: 2005, end: 2016
  48. POTASSIUM [Concomitant]
     Active Substance: POTASSIUM
     Indication: KIDNEY SMALL
     Dates: start: 2014, end: 2015
  49. MUPIROCIN. [Concomitant]
     Active Substance: MUPIROCIN
     Indication: BACTERIAL TEST
     Dates: start: 2013, end: 2017
  50. DIAZEPAM. [Concomitant]
     Active Substance: DIAZEPAM
     Indication: ANXIETY
     Dates: start: 2010, end: 2011
  51. ZITHROMAX [Concomitant]
     Active Substance: AZITHROMYCIN DIHYDRATE
  52. LOVENOX [Concomitant]
     Active Substance: ENOXAPARIN SODIUM
  53. MORPHINE [Concomitant]
     Active Substance: MORPHINE
  54. PRILOSEC [Suspect]
     Active Substance: OMEPRAZOLE MAGNESIUM
     Indication: GASTROOESOPHAGEAL REFLUX DISEASE
     Dosage: GENERIC40.0MG UNKNOWN
     Route: 065
     Dates: start: 20091229
  55. ALPRAZOLAM. [Concomitant]
     Active Substance: ALPRAZOLAM
     Indication: PANIC ATTACK
     Dates: start: 2012, end: 2017
  56. IBUPROFEN. [Concomitant]
     Active Substance: IBUPROFEN
     Indication: PAIN
     Dates: start: 20101220, end: 2017
  57. AMOXICILLIN. [Concomitant]
     Active Substance: AMOXICILLIN
     Dates: start: 20160613
  58. SOMA [Concomitant]
     Active Substance: CARISOPRODOL
  59. METAXALONE. [Concomitant]
     Active Substance: METAXALONE

REACTIONS (6)
  - End stage renal disease [Unknown]
  - Renal tubular disorder [Unknown]
  - Acute kidney injury [Not Recovered/Not Resolved]
  - Renal failure [Unknown]
  - Renal tubular necrosis [Unknown]
  - Chronic kidney disease [Not Recovered/Not Resolved]

NARRATIVE: CASE EVENT DATE: 201707
